FAERS Safety Report 4752060-6 (Version None)
Quarter: 2005Q3

REPORT INFORMATION
  Report Type: 
  Country: None (occurrence: None)
  Receive Date: 20050822
  Receipt Date: 20050712
  Transmission Date: 20060218
  Serious: No
  Sender: FDA-Public Use
  Company Number: PHEH2005US07712

PATIENT
  Age: 46 Year
  Sex: Female

DRUGS (2)
  1. ZELNORM [Suspect]
     Dosage: 1/2  6 MG TABLET, ORAL
     Route: 048
     Dates: start: 20050712
  2. PREVACID [Suspect]
     Indication: GASTROOESOPHAGEAL REFLUX DISEASE
     Dates: start: 20050601

REACTIONS (5)
  - DIARRHOEA [None]
  - FEELING ABNORMAL [None]
  - FEELING HOT [None]
  - FLUSHING [None]
  - HYPERHIDROSIS [None]
